FAERS Safety Report 5519688-7 (Version None)
Quarter: 2007Q4

REPORT INFORMATION
  Report Type: 
  Country: None (occurrence: None)
  Receive Date: 20071116
  Receipt Date: 20071108
  Transmission Date: 20080405
  Serious: Yes (Other)
  Sender: FDA-Public Use
  Company Number: DE-SANOFI-SYNTHELABO-A04200701717

PATIENT
  Age: 44 Year
  Sex: Female

DRUGS (2)
  1. QUENSYL [Suspect]
     Indication: CREST SYNDROME
     Dosage: 400 MG
     Route: 048
  2. TETRACYCLIN [Concomitant]
     Indication: BORRELIA INFECTION
     Dosage: UNK
     Route: 065

REACTIONS (2)
  - BLOOD CREATINE PHOSPHOKINASE INCREASED [None]
  - MYALGIA [None]
